FAERS Safety Report 6917163-6 (Version None)
Quarter: 2010Q3

REPORT INFORMATION
  Report Type: 
  Country: None (occurrence: None)
  Receive Date: 20100805
  Receipt Date: 20100802
  Transmission Date: 20110219
  Serious: Yes (Hospitalization, Other)
  Sender: FDA-Public Use
  Company Number: 2010SP030491

PATIENT
  Age: 59 Year
  Sex: Female

DRUGS (3)
  1. MIRALAX [Suspect]
     Dosage: ONCE; PO
     Route: 048
     Dates: start: 20100531
  2. PLAVIX [Concomitant]
  3. MILK OF MAGNESIA TAB [Concomitant]

REACTIONS (2)
  - DEHYDRATION [None]
  - VOMITING PROJECTILE [None]
